FAERS Safety Report 22937399 (Version 4)
Quarter: 2024Q2

REPORT INFORMATION
  Report Type: Report from Study
  Country: JP (occurrence: JP)
  Receive Date: 20230913
  Receipt Date: 20240613
  Transmission Date: 20240716
  Serious: No
  Sender: FDA-Public Use
  Company Number: JP-GSKJP-JP2020JPN214051AA

PATIENT
  Age: 76 Year
  Sex: Male
  Weight: 48 kg

DRUGS (4)
  1. BOTULINUM TOXIN TYPE A [Suspect]
     Active Substance: BOTULINUM TOXIN TYPE A
     Indication: Hypertonic bladder
     Dosage: TIME INTERVAL: AS NECESSARY: 100 IU, SINGLE
     Route: 030
     Dates: start: 20201002, end: 20201002
  2. TADALAFIL [Concomitant]
     Active Substance: TADALAFIL
     Indication: Benign prostatic hyperplasia
     Dosage: 5 MG, QD
     Route: 048
     Dates: start: 20190621
  3. NAFTOPIDIL [Concomitant]
     Active Substance: NAFTOPIDIL
     Indication: Benign prostatic hyperplasia
     Dosage: DAILY DOSE: 75.0 MG
     Route: 048
     Dates: start: 20151225
  4. URAPIDIL [Concomitant]
     Active Substance: URAPIDIL
     Indication: Benign prostatic hyperplasia
     Dosage: 15 MG, BID
     Route: 048
     Dates: start: 20180511

REACTIONS (2)
  - Residual urine volume increased [Recovering/Resolving]
  - Drug ineffective [Unknown]

NARRATIVE: CASE EVENT DATE: 20201013
